FAERS Safety Report 9134620 (Version 2)
Quarter: 2013Q2

REPORT INFORMATION
  Report Type: Spontaneous
  Country: US (occurrence: US)
  Receive Date: 20130304
  Receipt Date: 20130405
  Transmission Date: 20140414
  Serious: No
  Sender: FDA-Public Use
  Company Number: US-PFIZER INC-2013071951

PATIENT
  Age: 56 Year
  Sex: Female
  Weight: 71.66 kg

DRUGS (4)
  1. NEURONTIN [Suspect]
     Dosage: UNK
  2. LYRICA [Suspect]
     Dosage: UNK
  3. LEVOXYL [Suspect]
     Dosage: UNK
  4. CELEBREX [Suspect]
     Dosage: UNK

REACTIONS (5)
  - Muscle spasms [Unknown]
  - Gait disturbance [Unknown]
  - Tremor [Unknown]
  - Headache [Unknown]
  - Drug dispensing error [Unknown]
